FAERS Safety Report 15272444 (Version 1)
Quarter: 2018Q3

REPORT INFORMATION
  Report Type: Spontaneous
  Country: US (occurrence: US)
  Receive Date: 20180727
  Receipt Date: 20180727
  Transmission Date: 20181010
  Serious: Yes (Hospitalization)
  Sender: FDA-Public Use
  Company Number: None

PATIENT
  Age: 32 Year
  Sex: Male
  Weight: 67.5 kg

DRUGS (12)
  1. ACETAMINOPHEN 650MG PRN [Concomitant]
  2. PEG 17G PRN [Concomitant]
  3. CLOZAPINE. [Suspect]
     Active Substance: CLOZAPINE
     Indication: SCHIZOAFFECTIVE DISORDER BIPOLAR TYPE
     Dosage: ?          OTHER FREQUENCY:75MG 9A;?
     Route: 048
     Dates: start: 20180614, end: 20180704
  4. ARIPIPRAZOLE 30MG QAM [Concomitant]
  5. DIPHENHYDRAMINE 25?50MG PRN [Concomitant]
  6. HALOPERIDOL 10MG PRN [Concomitant]
  7. LACTULOSE 20G PRN [Concomitant]
  8. OLANZAPINE 20MG QPM [Concomitant]
  9. CITALOPRAM 20MG QAM [Concomitant]
  10. MIRTAZAPINE 30MG QHS [Concomitant]
  11. VALPROIC ACID 500MG BID [Concomitant]
  12. ALUMINUM/MAGNESIUM/SIMETHICONE PRN [Concomitant]

REACTIONS (14)
  - Pyrexia [None]
  - Myocarditis [None]
  - Electrocardiogram repolarisation abnormality [None]
  - Troponin increased [None]
  - Electrocardiogram ST-T change [None]
  - Pericarditis [None]
  - Tachycardia [None]
  - Diarrhoea [None]
  - Chest pain [None]
  - Back pain [None]
  - Pericardial effusion [None]
  - Pain [None]
  - Neck pain [None]
  - Inflammation [None]

NARRATIVE: CASE EVENT DATE: 20180704
